FAERS Safety Report 4435653-5 (Version None)
Quarter: 2004Q3

REPORT INFORMATION
  Report Type: 
  Country: None (occurrence: None)
  Receive Date: 20040726
  Receipt Date: 20040527
  Transmission Date: 20050211
  Serious: No
  Sender: FDA-Public Use
  Company Number: USA040568053

PATIENT
  Age: 73 Year
  Sex: Female
  Weight: 46 kg

DRUGS (2)
  1. FORTEO [Suspect]
     Indication: OSTEOPOROSIS
     Dosage: 20 UG DAY
     Dates: start: 20040512
  2. CALCIUM [Concomitant]

REACTIONS (7)
  - CHEST DISCOMFORT [None]
  - FATIGUE [None]
  - FEELING ABNORMAL [None]
  - HEART RATE IRREGULAR [None]
  - INSOMNIA [None]
  - PALPITATIONS [None]
  - SOMNOLENCE [None]
